FAERS Safety Report 6864642-6 (Version None)
Quarter: 2010Q3

REPORT INFORMATION
  Report Type: 
  Country: None (occurrence: None)
  Receive Date: 20100721
  Receipt Date: 20080802
  Transmission Date: 20110219
  Serious: Yes (Other)
  Sender: FDA-Public Use
  Company Number: US-PFIZER INC-2008027071

PATIENT
  Sex: Male
  Weight: 63.5 kg

DRUGS (14)
  1. CHANTIX [Suspect]
     Indication: SMOKING CESSATION THERAPY
  2. MOTRIN [Concomitant]
  3. PREVACID [Concomitant]
  4. PAXIL [Concomitant]
  5. CELEBREX [Concomitant]
  6. MIRALAX [Concomitant]
  7. BUSPAR [Concomitant]
  8. TRILAFON [Concomitant]
  9. MULTI-VITAMINS [Concomitant]
  10. FOLIC ACID [Concomitant]
  11. COGENTIN [Concomitant]
  12. LAMICTAL [Concomitant]
  13. ACETYLSALICYLIC ACID [Concomitant]
  14. TEGRETOL [Concomitant]

REACTIONS (2)
  - AGGRESSION [None]
  - AGITATION [None]
